FAERS Safety Report 6917713-X (Version None)
Quarter: 2010Q3

REPORT INFORMATION
  Report Type: 
  Country: None (occurrence: None)
  Receive Date: 20100806
  Receipt Date: 20100730
  Transmission Date: 20110219
  Serious: Yes (Hospitalization, Other)
  Sender: FDA-Public Use
  Company Number: WAES 1008USA00004

PATIENT
  Age: 59 Year
  Sex: Male

DRUGS (4)
  1. DECADRON [Suspect]
     Indication: NAUSEA
     Dosage: 4 MG/PRN/PO
     Route: 048
     Dates: start: 20100101
  2. MAXOLON [Suspect]
     Indication: NAUSEA
     Dosage: 10 MG/PRN/PO
     Route: 048
     Dates: start: 20100101
  3. ZOFRAN [Suspect]
     Indication: NAUSEA
     Dosage: 4 MG/PRN /PO
     Dates: start: 20100101
  4. BLINDED THERAPY [Concomitant]

REACTIONS (10)
  - ARTHRALGIA [None]
  - BACK PAIN [None]
  - CHEST PAIN [None]
  - COUGH [None]
  - DECREASED APPETITE [None]
  - DYSPNOEA [None]
  - HYPERHIDROSIS [None]
  - MALIGNANT NEOPLASM PROGRESSION [None]
  - MESOTHELIOMA [None]
  - WEIGHT DECREASED [None]
